FAERS Safety Report 4476249-9 (Version None)
Quarter: 2004Q3

REPORT INFORMATION
  Report Type: 
  Country: None (occurrence: None)
  Receive Date: 20040923
  Receipt Date: 20040729
  Transmission Date: 20050211
  Serious: No
  Sender: FDA-Public Use
  Company Number: USA040773915

PATIENT
  Age: 67 Year
  Sex: Female
  Weight: 60 kg

DRUGS (2)
  1. FORTEO [Suspect]
     Dosage: 20 UG 1 DAY
     Dates: start: 20040707
  2. CALCIUM WITH VITAMIN D [Concomitant]

REACTIONS (4)
  - DRY SKIN [None]
  - HEART RATE INCREASED [None]
  - PRURITUS [None]
  - SWELLING FACE [None]
